FAERS Safety Report 5735656-4 (Version None)
Quarter: 2008Q2

REPORT INFORMATION
  Report Type: 
  Country: None (occurrence: None)
  Receive Date: 20080512
  Receipt Date: 20080501
  Transmission Date: 20081010
  Serious: Yes (Hospitalization)
  Sender: FDA-Public Use
  Company Number: US-ELI_LILLY_AND_COMPANY-US200805000825

PATIENT
  Age: 65 Year
  Sex: Female

DRUGS (3)
  1. CYMBALTA [Suspect]
     Dosage: 60 MG, UNK
     Dates: start: 20080101
  2. PROZAC [Concomitant]
  3. SEROQUEL [Concomitant]
     Dosage: 50 MG, UNK

REACTIONS (1)
  - FALL [None]
